FAERS Safety Report 13864309 (Version 8)
Quarter: 2019Q3

REPORT INFORMATION
  Report Type: Report from Study
  Country: None (occurrence: US)
  Receive Date: 20170814
  Receipt Date: 20190730
  Transmission Date: 20191004
  Serious: Yes (Other)
  Sender: FDA-Public Use
  Company Number: US-ABBVIE-16K-163-1825432-00

PATIENT
  Sex: Female

DRUGS (3)
  1. HUMIRA [Suspect]
     Active Substance: ADALIMUMAB
     Dosage: CITRATE FREE
     Route: 058
  2. HUMIRA [Suspect]
     Active Substance: ADALIMUMAB
     Indication: RHEUMATOID ARTHRITIS
     Dosage: CITRATE FREE
     Route: 058
  3. HUMIRA [Suspect]
     Active Substance: ADALIMUMAB
     Indication: RHEUMATOID ARTHRITIS
     Route: 058
     Dates: start: 201507, end: 20170613

REACTIONS (12)
  - Eye inflammation [Unknown]
  - Neck pain [Unknown]
  - Areflexia [Unknown]
  - Psoriasis [Unknown]
  - Hypoaesthesia [Unknown]
  - Wound [Unknown]
  - Allergy to metals [Recovered/Resolved]
  - Surgical failure [Unknown]
  - Back pain [Unknown]
  - Rheumatoid arthritis [Unknown]
  - Herpes zoster [Recovering/Resolving]
  - Dermatitis allergic [Not Recovered/Not Resolved]

NARRATIVE: CASE EVENT DATE: 2015
